FAERS Safety Report 8356419-X (Version None)
Quarter: 2012Q2

REPORT INFORMATION
  Report Type: 
  Country: None (occurrence: None)
  Receive Date: 20120514
  Receipt Date: 20120507
  Transmission Date: 20120825
  Serious: Yes (Hospitalization)
  Sender: FDA-Public Use
  Company Number: FR-SANOFI-AVENTIS-2012SA031905

PATIENT
  Age: 44 Year
  Sex: Female

DRUGS (20)
  1. ALBUTEROL [Concomitant]
  2. LOMEXIN ^EFFIK^ [Concomitant]
  3. BISOPROLOL FUMARATE [Concomitant]
     Route: 048
  4. TRILEPTAL [Concomitant]
     Indication: EPILEPSY
     Route: 048
  5. FORMOTEROL FUMARATE [Concomitant]
  6. LOMEXIN ^EFFIK^ [Concomitant]
  7. CLONAZEPAM [Concomitant]
     Route: 048
  8. TRAMADOL HCL [Concomitant]
     Indication: PAIN
     Route: 048
  9. FUCIDINE CAP [Concomitant]
  10. PREVISCAN [Concomitant]
     Route: 048
  11. LEVOTHYROXINE SODIUM [Concomitant]
     Indication: HYPOTHYROIDISM
  12. NEXIUM [Concomitant]
     Route: 048
  13. POLYETHYLENE GLYCOL [Concomitant]
  14. BUDESONIDE [Concomitant]
  15. ARAVA [Suspect]
     Indication: RHEUMATOID ARTHRITIS
     Route: 048
     Dates: start: 20100101
  16. ACETAMINOPHEN [Concomitant]
     Indication: PAIN
     Route: 048
  17. PROZAC [Concomitant]
     Indication: DEPRESSION
     Route: 048
  18. POLYETHYLENE GLYCOL [Concomitant]
  19. DICLOFENAC SODIUM [Concomitant]
  20. OROCAL D(3) [Concomitant]

REACTIONS (2)
  - INTERNATIONAL NORMALISED RATIO DECREASED [None]
  - VENOUS THROMBOSIS [None]
